FAERS Safety Report 5309272-2 (Version None)
Quarter: 2007Q2

REPORT INFORMATION
  Report Type: 
  Country: None (occurrence: None)
  Receive Date: 20070427
  Receipt Date: 20070417
  Transmission Date: 20071010
  Serious: Yes (Hospitalization)
  Sender: FDA-Public Use
  Company Number: JP-ROCHE-491734

PATIENT
  Age: 5 Year
  Sex: Male

DRUGS (6)
  1. TAMIFLU [Suspect]
     Dosage: DOSE FORM: DRY SYRUP. TAMIFLU WAS ADMINISTERED ONLY ONCE.
     Route: 048
     Dates: start: 20070330, end: 20070330
  2. UNSPECIFIED DRUG [Concomitant]
     Dosage: TRADE NAME REPORTED AS PULLSMALIN R, GENERIC NAME REPORTED AS DIMETHYLAMINOETHYL RESERPILINATE DIHY+
     Route: 048
  3. ASVERIN [Concomitant]
     Route: 048
  4. LEFTOSE [Concomitant]
     Dosage: GENERIC NAME REPORTED AS LYSOZYME HYDROCHLORIDE.
     Route: 048
  5. COCARL [Concomitant]
     Route: 048
  6. BISOLVON [Concomitant]
     Route: 048

REACTIONS (1)
  - ABNORMAL BEHAVIOUR [None]
